FAERS Safety Report 14511591 (Version 2)
Quarter: 2018Q1

REPORT INFORMATION
  Report Type: Spontaneous
  Country: GR (occurrence: GR)
  Receive Date: 20180209
  Receipt Date: 20180226
  Transmission Date: 20180509
  Serious: Yes (Other)
  Sender: FDA-Public Use
  Company Number: GR-UCBSA-2017044056

PATIENT
  Age: 20 Year
  Sex: Female
  Weight: 51 kg

DRUGS (2)
  1. FENISTIL [Concomitant]
     Active Substance: DIMETHINDENE
     Indication: URTICARIA
     Dosage: UNKNOWN DOSE
     Dates: start: 20171004, end: 20171010
  2. XUZAL [Suspect]
     Active Substance: LEVOCETIRIZINE
     Indication: URTICARIA
     Dosage: 5 MG, ONCE DAILY (QD)
     Route: 048
     Dates: start: 20171004, end: 20171010

REACTIONS (2)
  - Abortion induced [Unknown]
  - Exposure during pregnancy [Unknown]

NARRATIVE: CASE EVENT DATE: 20171004
